FAERS Safety Report 21879782 (Version 8)
Quarter: 2024Q2

REPORT INFORMATION
  Report Type: Report from Study
  Country: US (occurrence: US)
  Receive Date: 20230118
  Receipt Date: 20240625
  Transmission Date: 20240716
  Serious: Yes (Disabling, Other)
  Sender: FDA-Public Use
  Company Number: US-HORIZON THERAPEUTICS-HZN-2022-000992

PATIENT
  Age: 80 Year
  Sex: Female
  Weight: 47.619 kg

DRUGS (45)
  1. TEPEZZA [Suspect]
     Active Substance: TEPROTUMUMAB-TRBW
     Indication: Endocrine ophthalmopathy
     Dosage: 470 MILLIGRAM, FIRST INFUSION
     Route: 042
     Dates: start: 20220112
  2. TEPEZZA [Suspect]
     Active Substance: TEPROTUMUMAB-TRBW
     Dosage: 960 MILLIGRAM, Q3WK SECOND INFUSION
     Route: 042
     Dates: start: 20220202
  3. TEPEZZA [Suspect]
     Active Substance: TEPROTUMUMAB-TRBW
     Dosage: 960 MILLIGRAM, Q3WK THIRD INFUSION
     Route: 042
     Dates: start: 20220223
  4. TEPEZZA [Suspect]
     Active Substance: TEPROTUMUMAB-TRBW
     Dosage: 960 MILLIGRAM, Q3WK FOURTH INFUSION
     Route: 042
     Dates: start: 20220316
  5. TEPEZZA [Suspect]
     Active Substance: TEPROTUMUMAB-TRBW
     Dosage: 960 MILLIGRAM, Q3WK FIFTH INFUSION
     Route: 042
     Dates: start: 20220406
  6. TEPEZZA [Suspect]
     Active Substance: TEPROTUMUMAB-TRBW
     Dosage: 960 MILLIGRAM, Q3WK SIXTH INFUSION
     Route: 042
     Dates: start: 20220427
  7. TEPEZZA [Suspect]
     Active Substance: TEPROTUMUMAB-TRBW
     Dosage: 920 MILLIGRAM, Q3WK SEVENTH INFUSION
     Route: 042
     Dates: start: 20220525
  8. TEPEZZA [Suspect]
     Active Substance: TEPROTUMUMAB-TRBW
     Dosage: 930 MILLIGRAM, Q3WK EIGHTH INFUSION
     Route: 042
     Dates: start: 20220615, end: 20220615
  9. LEVOTHYROXINE SODIUM [Concomitant]
     Active Substance: LEVOTHYROXINE SODIUM
     Dosage: UNK, QD
     Route: 048
     Dates: start: 20220202
  10. LEVOTHYROXINE SODIUM [Concomitant]
     Active Substance: LEVOTHYROXINE SODIUM
     Dosage: UNK, QD
     Route: 048
     Dates: start: 20220316
  11. LEVOTHYROXINE SODIUM [Concomitant]
     Active Substance: LEVOTHYROXINE SODIUM
     Dosage: UNK, QD
     Route: 048
     Dates: start: 20220427
  12. VITAMIN D3 [Concomitant]
     Active Substance: CHOLECALCIFEROL
     Dosage: UNK, WEEKLY
     Route: 048
  13. AZITHROMYCIN [Concomitant]
     Active Substance: AZITHROMYCIN
  14. ARMOUR THYROID [Concomitant]
     Active Substance: THYROID, PORCINE
     Dosage: 120 MG
     Route: 048
  15. ACETAMINOPHEN [Concomitant]
     Active Substance: ACETAMINOPHEN
     Dosage: 650 MG
     Route: 048
     Dates: start: 20220112
  16. ACETAMINOPHEN [Concomitant]
     Active Substance: ACETAMINOPHEN
     Dosage: 650 MG
     Route: 048
     Dates: start: 20220202
  17. ACETAMINOPHEN [Concomitant]
     Active Substance: ACETAMINOPHEN
     Dosage: 650 MG
     Route: 048
     Dates: start: 20220223
  18. ACETAMINOPHEN [Concomitant]
     Active Substance: ACETAMINOPHEN
     Dosage: 650 MG
     Route: 048
     Dates: start: 20220316
  19. ACETAMINOPHEN [Concomitant]
     Active Substance: ACETAMINOPHEN
     Dosage: 650 MG
     Route: 048
     Dates: start: 20220406
  20. ACETAMINOPHEN [Concomitant]
     Active Substance: ACETAMINOPHEN
     Dosage: 650 MG
     Route: 048
     Dates: start: 20220427
  21. DIPHENHYDRAMINE HYDROCHLORIDE [Concomitant]
     Active Substance: DIPHENHYDRAMINE HYDROCHLORIDE
     Dosage: 50 MG
     Route: 042
     Dates: start: 20220112
  22. DIPHENHYDRAMINE HYDROCHLORIDE [Concomitant]
     Active Substance: DIPHENHYDRAMINE HYDROCHLORIDE
     Dosage: 50 MG
     Route: 042
     Dates: start: 20220202
  23. DIPHENHYDRAMINE HYDROCHLORIDE [Concomitant]
     Active Substance: DIPHENHYDRAMINE HYDROCHLORIDE
     Dosage: 50 MG
     Route: 042
     Dates: start: 20220223
  24. DIPHENHYDRAMINE HYDROCHLORIDE [Concomitant]
     Active Substance: DIPHENHYDRAMINE HYDROCHLORIDE
     Dosage: 50 MG
     Route: 042
     Dates: start: 20220316
  25. DIPHENHYDRAMINE HYDROCHLORIDE [Concomitant]
     Active Substance: DIPHENHYDRAMINE HYDROCHLORIDE
     Dosage: 50 MG
     Route: 042
     Dates: start: 20220406
  26. DIPHENHYDRAMINE HYDROCHLORIDE [Concomitant]
     Active Substance: DIPHENHYDRAMINE HYDROCHLORIDE
     Dosage: 50 MG
     Route: 042
     Dates: start: 20220427
  27. METHYLPREDNISOLONE [Concomitant]
     Active Substance: METHYLPREDNISOLONE
     Dosage: 125 MG
     Route: 042
     Dates: start: 20220112
  28. METHYLPREDNISOLONE [Concomitant]
     Active Substance: METHYLPREDNISOLONE
     Dosage: 125 MG
     Route: 042
     Dates: start: 20220202
  29. METHYLPREDNISOLONE [Concomitant]
     Active Substance: METHYLPREDNISOLONE
     Dosage: 125 MG
     Route: 042
     Dates: start: 20220223
  30. METHYLPREDNISOLONE [Concomitant]
     Active Substance: METHYLPREDNISOLONE
     Dosage: 125 MG
     Route: 042
     Dates: start: 20220316
  31. METHYLPREDNISOLONE [Concomitant]
     Active Substance: METHYLPREDNISOLONE
     Dosage: 125 MG
     Route: 042
     Dates: start: 20220406
  32. METHYLPREDNISOLONE [Concomitant]
     Active Substance: METHYLPREDNISOLONE
     Dosage: 125 MG
     Route: 042
     Dates: start: 20220427
  33. EPINEPHRINE [Concomitant]
     Active Substance: EPINEPHRINE
     Dosage: 0.3 MG
     Route: 030
     Dates: start: 20220112
  34. EPINEPHRINE [Concomitant]
     Active Substance: EPINEPHRINE
     Dosage: 0.3 MG
     Route: 030
     Dates: start: 20220202
  35. EPINEPHRINE [Concomitant]
     Active Substance: EPINEPHRINE
     Dosage: 0.3 MG
     Route: 030
     Dates: start: 20220223
  36. EPINEPHRINE [Concomitant]
     Active Substance: EPINEPHRINE
     Dosage: 0.3 MG
     Route: 030
     Dates: start: 20220316
  37. EPINEPHRINE [Concomitant]
     Active Substance: EPINEPHRINE
     Dosage: 0.3 MG
     Route: 030
     Dates: start: 20220406
  38. EPINEPHRINE [Concomitant]
     Active Substance: EPINEPHRINE
     Dosage: 0.3 MG
     Route: 030
     Dates: start: 20220427
  39. OXYGEN [Concomitant]
     Active Substance: OXYGEN
     Dosage: 2 L
     Route: 065
     Dates: start: 20220112
  40. OXYGEN [Concomitant]
     Active Substance: OXYGEN
     Dosage: 2 L
     Route: 065
     Dates: start: 20220202
  41. OXYGEN [Concomitant]
     Active Substance: OXYGEN
     Dosage: 2 L
     Route: 065
     Dates: start: 20220223
  42. OXYGEN [Concomitant]
     Active Substance: OXYGEN
     Dosage: 2 L
     Route: 065
     Dates: start: 20220316
  43. OXYGEN [Concomitant]
     Active Substance: OXYGEN
     Dosage: 2 L
     Route: 065
     Dates: start: 20220406
  44. OXYGEN [Concomitant]
     Active Substance: OXYGEN
     Dosage: 2 L
     Route: 065
     Dates: start: 20220427
  45. SYNTHROID [Concomitant]
     Active Substance: LEVOTHYROXINE SODIUM
     Dosage: UNK
     Route: 048

REACTIONS (34)
  - Aortic arteriosclerosis [Unknown]
  - Disability [Unknown]
  - Deafness permanent [Unknown]
  - Neuropathy peripheral [Recovered/Resolved]
  - Anxiety [Unknown]
  - Economic problem [Unknown]
  - Concomitant disease aggravated [Unknown]
  - General physical health deterioration [Unknown]
  - Pain [Unknown]
  - Injury [Unknown]
  - Deformity [Not Recovered/Not Resolved]
  - Decreased appetite [Unknown]
  - Lethargy [Unknown]
  - Lacrimation increased [Not Recovered/Not Resolved]
  - Eye pruritus [Not Recovered/Not Resolved]
  - Urinary tract infection [Not Recovered/Not Resolved]
  - Pruritus [Not Recovered/Not Resolved]
  - Erythema of eyelid [Unknown]
  - Asthenia [Recovering/Resolving]
  - Tinnitus [Unknown]
  - Eye discharge [Unknown]
  - Drug ineffective [Recovering/Resolving]
  - Weight decreased [Unknown]
  - Fatigue [Unknown]
  - Dry skin [Not Recovered/Not Resolved]
  - Nausea [Unknown]
  - Muscle spasms [Unknown]
  - Alopecia [Not Recovered/Not Resolved]
  - Symptom recurrence [Not Recovered/Not Resolved]
  - Skin swelling [Unknown]
  - Product quality issue [Unknown]
  - Blood glucose increased [Unknown]
  - COVID-19 [Unknown]
  - Erythema [Unknown]

NARRATIVE: CASE EVENT DATE: 20220101
